FAERS Safety Report 6423519-0 (Version None)
Quarter: 2009Q4

REPORT INFORMATION
  Report Type: 
  Country: None (occurrence: None)
  Receive Date: 20091102
  Receipt Date: 20081013
  Transmission Date: 20100525
  Serious: No
  Sender: FDA-Public Use
  Company Number: A0751795A

PATIENT
  Age: 69 Year
  Sex: Female

DRUGS (3)
  1. RYTHMOL SR [Suspect]
     Indication: TACHYCARDIA
     Dosage: 225MG SINGLE DOSE
     Route: 048
     Dates: start: 20081009, end: 20081009
  2. VICODIN [Concomitant]
  3. MAXZIDE [Concomitant]
     Route: 048

REACTIONS (5)
  - BLOOD PRESSURE INCREASED [None]
  - HEART RATE INCREASED [None]
  - HEART SOUNDS ABNORMAL [None]
  - PALPITATIONS [None]
  - TREMOR [None]
